FAERS Safety Report 11980220 (Version 4)
Quarter: 2016Q1

REPORT INFORMATION
  Report Type: Spontaneous
  Country: US (occurrence: US)
  Receive Date: 20160129
  Receipt Date: 20160330
  Transmission Date: 20160526
  Serious: Yes (Hospitalization, Other)
  Sender: FDA-Public Use
  Company Number: US-BAYER-2016-017714

PATIENT
  Age: 29 Year
  Sex: Female
  Weight: 126.98 kg

DRUGS (2)
  1. HEPARIN SODIUM. [Concomitant]
     Active Substance: HEPARIN SODIUM
     Indication: ANTIPHOSPHOLIPID SYNDROME
     Dosage: UNK
     Dates: start: 2007, end: 2013
  2. MIRENA [Suspect]
     Active Substance: LEVONORGESTREL
     Indication: CONTRACEPTION
     Dosage: 20 MCG/24HR, CONT
     Route: 015
     Dates: start: 20121217, end: 20140110

REACTIONS (7)
  - Stress [None]
  - Uterine perforation [Not Recovered/Not Resolved]
  - Depression [None]
  - Drug ineffective [None]
  - Anxiety [None]
  - Pain [Not Recovered/Not Resolved]
  - Pregnancy with contraceptive device [None]

NARRATIVE: CASE EVENT DATE: 20130202
